FAERS Safety Report 11617079 (Version 3)
Quarter: 2015Q4

REPORT INFORMATION
  Report Type: Spontaneous
  Country: US (occurrence: US)
  Receive Date: 20151009
  Receipt Date: 20151016
  Transmission Date: 20160304
  Serious: No
  Sender: FDA-Public Use
  Company Number: US-ASTRAZENECA-2015SE96150

PATIENT
  Age: 67 Year
  Sex: Male
  Weight: 170.1 kg

DRUGS (3)
  1. ALBUTEROL. [Concomitant]
     Active Substance: ALBUTEROL
  2. OXYGEN. [Concomitant]
     Active Substance: OXYGEN
  3. TUDORZA PRESSAIR [Suspect]
     Active Substance: ACLIDINIUM BROMIDE
     Indication: CHRONIC OBSTRUCTIVE PULMONARY DISEASE
     Dosage: 400 MCG, 1 PUFF TWICE A DAY
     Route: 055

REACTIONS (11)
  - Visual acuity reduced [Unknown]
  - Dyspnoea [Unknown]
  - Circumstance or information capable of leading to medication error [Unknown]
  - Influenza [Unknown]
  - Malaise [Unknown]
  - Drug dose omission [Unknown]
  - Dizziness [Unknown]
  - Feeling abnormal [Unknown]
  - Product quality issue [Unknown]
  - Hearing impaired [Unknown]
  - Overweight [Unknown]
